FAERS Safety Report 19880577 (Version 1)
Quarter: 2021Q3

REPORT INFORMATION
  Report Type: Spontaneous
  Country: AU (occurrence: AU)
  Receive Date: 20210924
  Receipt Date: 20210924
  Transmission Date: 20211014
  Serious: Yes (Hospitalization, Other)
  Sender: FDA-Public Use
  Company Number: AU-GLAXOSMITHKLINE-AU2021GSK199529

PATIENT
  Age: 18 Year
  Sex: Female

DRUGS (2)
  1. SALBUTAMOL [Concomitant]
     Active Substance: ALBUTEROL
     Indication: ASTHMA
     Dosage: UNK
     Route: 055
  2. SUMATRIPTAN SUCCINATE. [Suspect]
     Active Substance: SUMATRIPTAN SUCCINATE
     Indication: MIGRAINE
     Dosage: 50 MG
     Route: 048

REACTIONS (6)
  - Nausea [Unknown]
  - Anaphylactic reaction [Unknown]
  - Vision blurred [Unknown]
  - Throat tightness [Unknown]
  - Presyncope [Unknown]
  - Angioedema [Unknown]
